FAERS Safety Report 9641915 (Version 1)
Quarter: 2013Q4

REPORT INFORMATION
  Report Type: Spontaneous
  Country: US (occurrence: US)
  Receive Date: 20131023
  Receipt Date: 20131023
  Transmission Date: 20140711
  Serious: Yes (Other)
  Sender: FDA-Public Use
  Company Number: CHPA2013US015891

PATIENT
  Age: 71 Year
  Sex: Male

DRUGS (3)
  1. MAALOX ANTACID/ANTIGAS MAX QDTABS ASST [Suspect]
     Indication: GASTROOESOPHAGEAL REFLUX DISEASE
     Dosage: UNK, UNK
     Route: 048
  2. MAALOX ANTACID/ANTIGAS MAX QDTABS ASST [Suspect]
     Indication: ULCER
  3. MAALOX ANTACID/ANTIGAS MAX QDTABS ASST [Suspect]
     Indication: OFF LABEL USE

REACTIONS (3)
  - Ulcer [Unknown]
  - Milk allergy [Not Recovered/Not Resolved]
  - Therapeutic response unexpected [Unknown]
